FAERS Safety Report 10598833 (Version 2)
Quarter: 2014Q4

REPORT INFORMATION
  Report Type: Report from Study
  Country: BR (occurrence: BR)
  Receive Date: 20141121
  Receipt Date: 20141121
  Transmission Date: 20150529
  Serious: Yes (Other)
  Sender: FDA-Public Use
  Company Number: BR-BRISTOL-MYERS SQUIBB COMPANY-21498613

PATIENT
  Age: 44 Year
  Sex: Female
  Weight: 60 kg

DRUGS (1)
  1. ERBITUX [Suspect]
     Active Substance: CETUXIMAB
     Indication: GASTROINTESTINAL CARCINOMA
     Dates: start: 20140905, end: 20141017

REACTIONS (9)
  - Vomiting [Not Recovered/Not Resolved]
  - Acne [Not Recovered/Not Resolved]
  - Rash pruritic [Not Recovered/Not Resolved]
  - Dry skin [Not Recovered/Not Resolved]
  - Syncope [Unknown]
  - Skin reaction [Not Recovered/Not Resolved]
  - Cerebrovascular accident [Unknown]
  - Mucosal inflammation [Unknown]
  - Hypokinesia [Unknown]

NARRATIVE: CASE EVENT DATE: 20141022
